FAERS Safety Report 19597700 (Version 1)
Quarter: 2021Q3

REPORT INFORMATION
  Report Type: Report from Study
  Country: BR (occurrence: BR)
  Receive Date: 20210723
  Receipt Date: 20210723
  Transmission Date: 20211014
  Serious: Yes (Other)
  Sender: FDA-Public Use
  Company Number: BR-JNJFOC-20210735090

PATIENT
  Sex: Male
  Weight: 55 kg

DRUGS (1)
  1. REMICADE [Suspect]
     Active Substance: INFLIXIMAB
     Indication: CROHN^S DISEASE
     Dosage: WEEK 0, 2, 6 AND EVERY 8 (WEEK)
     Route: 042
     Dates: start: 20210626

REACTIONS (3)
  - Colostomy [Unknown]
  - Bladder catheterisation [Unknown]
  - Paracoccidioides infection [Unknown]
